FAERS Safety Report 6123208-6 (Version None)
Quarter: 2009Q1

REPORT INFORMATION
  Report Type: 
  Country: None (occurrence: None)
  Receive Date: 20090318
  Receipt Date: 20080929
  Transmission Date: 20090719
  Serious: No
  Sender: FDA-Public Use
  Company Number: US-ABBOTT-08P-163-0477669-00

PATIENT
  Sex: Female
  Weight: 61 kg

DRUGS (4)
  1. BIAXIN XL [Suspect]
     Indication: CELLULITIS
     Route: 048
     Dates: start: 20070301
  2. ANTIHISTAMINES [Concomitant]
     Indication: INFLAMMATION
     Route: 048
  3. ACETYLSALICYLIC ACID [Concomitant]
     Indication: ANTICOAGULANT THERAPY
     Route: 048
  4. TETRYZOLINE HYDROCHLORIDE [Concomitant]
     Indication: INFLAMMATION
     Route: 047

REACTIONS (7)
  - BURNING SENSATION [None]
  - DRUG INEFFECTIVE [None]
  - HEADACHE [None]
  - PAIN [None]
  - PRURITUS [None]
  - PYREXIA [None]
  - VISUAL ACUITY REDUCED [None]
